FAERS Safety Report 5675424-5 (Version None)
Quarter: 2008Q1

REPORT INFORMATION
  Report Type: 
  Country: None (occurrence: None)
  Receive Date: 20080320
  Receipt Date: 20080312
  Transmission Date: 20080703
  Serious: Yes (Hospitalization)
  Sender: FDA-Public Use
  Company Number: PHEH2008US02690

PATIENT
  Age: 75 Year
  Sex: Female
  Weight: 46.712 kg

DRUGS (1)
  1. RECLAST [Suspect]
     Dosage: 5 MG, UNK
     Dates: start: 20080311

REACTIONS (5)
  - ARTHRALGIA [None]
  - CHILLS [None]
  - ELECTROCARDIOGRAM ABNORMAL [None]
  - GAIT DISTURBANCE [None]
  - PYREXIA [None]
